FAERS Safety Report 18351058 (Version 1)
Quarter: 2020Q4

REPORT INFORMATION
  Report Type: Spontaneous
  Country: IN (occurrence: IN)
  Receive Date: 20201006
  Receipt Date: 20201006
  Transmission Date: 20210114
  Serious: Yes (Other)
  Sender: FDA-Public Use
  Company Number: IN-MYLANLABS-2020M1084812

PATIENT
  Age: 7 Decade
  Sex: Female

DRUGS (2)
  1. VANCOMYCIN [Suspect]
     Active Substance: VANCOMYCIN
     Indication: PROPHYLAXIS
     Dosage: 1 MILLIGRAM
     Route: 031
  2. VANCOMYCIN [Suspect]
     Active Substance: VANCOMYCIN
     Indication: ENDOPHTHALMITIS

REACTIONS (4)
  - Retinal haemorrhage [Unknown]
  - Retinal vascular occlusion [Unknown]
  - Off label use [Unknown]
  - Retinal vasculitis [Unknown]
